FAERS Safety Report 10531096 (Version 1)
Quarter: 2014Q4

REPORT INFORMATION
  Report Type: Spontaneous
  Country: US (occurrence: US)
  Receive Date: 20141021
  Receipt Date: 20141021
  Transmission Date: 20150529
  Serious: No
  Sender: FDA-Public Use
  Company Number: US-GLAXOSMITHKLINE-US2014003492

PATIENT
  Age: 34 Year
  Sex: Male

DRUGS (1)
  1. NICORETTE FRUIT CHILL [Suspect]
     Active Substance: NICOTINE
     Indication: SMOKING CESSATION THERAPY
     Dosage: 4 MG, UNK
     Route: 002
     Dates: start: 20141002, end: 20141006

REACTIONS (4)
  - Hypersensitivity [Not Recovered/Not Resolved]
  - Malaise [Recovered/Resolved]
  - Chills [Recovered/Resolved]
  - Pruritus [Not Recovered/Not Resolved]

NARRATIVE: CASE EVENT DATE: 20141004
